FAERS Safety Report 17295502 (Version 12)
Quarter: 2020Q2

REPORT INFORMATION
  Report Type: Report from Study
  Country: None (occurrence: CA)
  Receive Date: 20200121
  Receipt Date: 20200421
  Transmission Date: 20200713
  Serious: Yes (Death, Hospitalization, Other)
  Sender: FDA-Public Use
  Company Number: CA-ABBVIE-20K-028-3233575-00

PATIENT
  Age: 49 Year
  Sex: Male

DRUGS (1)
  1. SKYRIZI [Suspect]
     Active Substance: RISANKIZUMAB-RZAA
     Indication: PSORIASIS
     Dosage: 75 MG/0.83 ML
     Route: 058
     Dates: start: 20191217, end: 202001

REACTIONS (26)
  - Nausea [Unknown]
  - Metabolic surgery [Unknown]
  - Pyrexia [Recovered/Resolved]
  - Fall [Recovered/Resolved]
  - Drug ineffective [Not Recovered/Not Resolved]
  - Intestinal perforation [Fatal]
  - Post procedural haemorrhage [Recovered/Resolved]
  - Discharge [Not Recovered/Not Resolved]
  - Vomiting [Unknown]
  - Insomnia [Not Recovered/Not Resolved]
  - Fistula [Unknown]
  - Therapeutic product effect incomplete [Not Recovered/Not Resolved]
  - Malaise [Not Recovered/Not Resolved]
  - Blood sodium decreased [Unknown]
  - Acute respiratory distress syndrome [Not Recovered/Not Resolved]
  - Bone contusion [Recovering/Resolving]
  - Impaired healing [Not Recovered/Not Resolved]
  - Septic shock [Fatal]
  - Surgery [Unknown]
  - Duodenal ulcer perforation [Recovered/Resolved]
  - Rib fracture [Recovering/Resolving]
  - Gastric pH decreased [Not Recovered/Not Resolved]
  - Weight decreased [Unknown]
  - Anaemia [Not Recovered/Not Resolved]
  - Lipids abnormal [Unknown]
  - Pain [Recovered/Resolved]

NARRATIVE: CASE EVENT DATE: 2020
